FAERS Safety Report 8822218 (Version 5)
Quarter: 2013Q2

REPORT INFORMATION
  Report Type: Spontaneous
  Country: US (occurrence: US)
  Receive Date: 20121003
  Receipt Date: 20130422
  Transmission Date: 20140414
  Serious: Yes (Disabling, Other)
  Sender: FDA-Public Use
  Company Number: US-PFIZER INC-2012243199

PATIENT
  Age: 57 Year
  Sex: Female

DRUGS (6)
  1. LYRICA [Suspect]
     Indication: FIBROMYALGIA
     Dosage: 150 MG, 3X/DAY
     Route: 048
     Dates: end: 2009
  2. LYRICA [Suspect]
     Indication: PARAESTHESIA
  3. MIRAPEX [Concomitant]
     Dosage: 1.5 MG, 1X/DAY (QHS)
  4. METOPROLOL [Concomitant]
     Dosage: 50 ONCE DAILY
  5. FLUOXETINE [Concomitant]
     Dosage: 20 QID
  6. NITROGLYCERIN [Concomitant]
     Dosage: AS NEEDED (PRN)

REACTIONS (5)
  - Abasia [Unknown]
  - Pain [Unknown]
  - Hypokinesia [Unknown]
  - Irritability [Unknown]
  - Asthenia [Unknown]
